FAERS Safety Report 9171024 (Version 3)
Quarter: 2013Q2

REPORT INFORMATION
  Report Type: Spontaneous
  Country: JP (occurrence: JP)
  Receive Date: 20130319
  Receipt Date: 20130515
  Transmission Date: 20140414
  Serious: Yes (Hospitalization, Other)
  Sender: FDA-Public Use
  Company Number: JP-PFIZER INC-2013087754

PATIENT
  Age: 70 Year
  Sex: Male
  Weight: 58 kg

DRUGS (13)
  1. CHAMPIX [Suspect]
     Indication: SMOKING CESSATION THERAPY
     Dosage: UNK
     Route: 048
     Dates: start: 20121024, end: 20130109
  2. RENIVACE [Suspect]
     Dosage: 5 MG, 1X/DAY
     Route: 048
     Dates: start: 20121024, end: 20130109
  3. RENIVACE [Suspect]
     Dosage: 5 MG, 1X/DAY
     Route: 048
     Dates: start: 20130117, end: 20130131
  4. TRICHLORMETHIAZIDE [Suspect]
     Dosage: 1 MG, 1X/DAY
     Route: 048
     Dates: start: 20121024, end: 20130109
  5. GLIMEPIRIDE [Concomitant]
     Dosage: 4 MG, 1X/DAY
     Route: 048
     Dates: start: 20121024, end: 20130109
  6. ATORVASTATIN [Concomitant]
     Dosage: 5 MG, 1X/DAY
     Route: 048
     Dates: start: 20121024, end: 20130109
  7. ATORVASTATIN [Concomitant]
     Dosage: 30 MG, 1X/DAY
     Route: 048
     Dates: start: 20130117
  8. PIOGLITAZONE [Concomitant]
     Dosage: 30 MG, 1X/DAY
     Route: 048
     Dates: start: 20121024, end: 20130109
  9. AMLODIPINE [Concomitant]
     Dosage: 5 MG, 1X/DAY
     Route: 048
     Dates: start: 20121024, end: 20130109
  10. MAGMITT [Concomitant]
     Dosage: 500 MG, 2X/DAY
     Route: 048
     Dates: start: 20121024, end: 20121120
  11. MAGMITT [Concomitant]
     Dosage: 250 MG, 2X/DAY
     Route: 048
     Dates: start: 20121121, end: 20130109
  12. MAGMITT [Concomitant]
     Dosage: 250 MG, 1X/DAY
     Route: 048
     Dates: start: 20130117, end: 20130131
  13. TAIPROTON [Concomitant]
     Dosage: 15 MG, 1X/DAY
     Route: 048
     Dates: start: 20121024, end: 20121218

REACTIONS (5)
  - Hyponatraemia [Recovering/Resolving]
  - Loss of control of legs [Recovered/Resolved]
  - Fall [Recovered/Resolved]
  - Vomiting [Unknown]
  - Decreased appetite [Unknown]
